FAERS Safety Report 9285042 (Version 1)
Quarter: 2013Q2

REPORT INFORMATION
  Report Type: Spontaneous
  Country: TR (occurrence: TR)
  Receive Date: 20130513
  Receipt Date: 20130513
  Transmission Date: 20140414
  Serious: Yes (Death, Life-Threatening, Hospitalization)
  Sender: FDA-Public Use
  Company Number: TR-JNJFOC-20130500703

PATIENT
  Age: 65 Year
  Sex: Male

DRUGS (2)
  1. ZYTIGA [Suspect]
     Indication: PROSTATE CANCER
     Dosage: 250 MG X 4
     Route: 048
     Dates: start: 20130315, end: 20130318
  2. COUMADIN [Concomitant]
     Indication: VASCULAR OCCLUSION
     Route: 048

REACTIONS (1)
  - Cerebral artery occlusion [Fatal]
